FAERS Safety Report 7933250-8 (Version None)
Quarter: 2011Q4

REPORT INFORMATION
  Report Type: 
  Country: None (occurrence: None)
  Receive Date: 20111122
  Receipt Date: 20111031
  Transmission Date: 20120403
  Serious: No
  Sender: FDA-Public Use
  Company Number: US-ROXANE LABORATORIES, INC.-2011-RO-01573RO

PATIENT
  Sex: Male

DRUGS (2)
  1. FEXOFENADINE HCL [Suspect]
     Indication: URTICARIA
     Dosage: 180 MG
     Route: 048
     Dates: start: 20111008
  2. METHADONE HCL [Suspect]
     Indication: PAIN

REACTIONS (3)
  - SOMNOLENCE [None]
  - URTICARIA [None]
  - PRURITUS [None]
